FAERS Safety Report 14600913 (Version 2)
Quarter: 2018Q3

REPORT INFORMATION
  Report Type: Report from Study
  Country: JP (occurrence: JP)
  Receive Date: 20180305
  Receipt Date: 20180725
  Transmission Date: 20181010
  Serious: Yes (Life-Threatening, Hospitalization, Other)
  Sender: FDA-Public Use
  Company Number: JP-ACTELION-A-CH2018-168627

PATIENT
  Age: 76 Year
  Sex: Male

DRUGS (35)
  1. HUMULIN R [Suspect]
     Active Substance: INSULIN HUMAN
     Indication: TYPE 2 DIABETES MELLITUS
     Dosage: 10 ML, UNK
     Route: 042
     Dates: start: 20161211, end: 20161223
  2. PLAVIX [Concomitant]
     Active Substance: CLOPIDOGREL BISULFATE
  3. LIXIANA [Concomitant]
     Active Substance: EDOXABAN TOSYLATE
  4. MUCOSOLVAN [Concomitant]
     Active Substance: AMBROXOL HYDROCHLORIDE
  5. TANATRIL [Concomitant]
     Active Substance: IMIDAPRIL
  6. KALIMATE [Concomitant]
     Active Substance: CALCIUM POLYSTYRENE SULFONATE
  7. SENNOSIDE [Concomitant]
     Active Substance: SENNOSIDES
  8. MIYA?BM [Concomitant]
     Active Substance: CLOSTRIDIUM BUTYRICUM SPORES STRAIN M-55
  9. AMLODIPINE [Concomitant]
     Active Substance: AMLODIPINE BESYLATE
  10. CARBOCISTEINE [Concomitant]
     Active Substance: CARBOCYSTEINE
  11. SPIRONOLACTONE. [Concomitant]
     Active Substance: SPIRONOLACTONE
  12. BELSOMRA [Concomitant]
     Active Substance: SUVOREXANT
  13. RISPERDAL [Concomitant]
     Active Substance: RISPERIDONE
  14. REVATIO [Concomitant]
     Active Substance: SILDENAFIL CITRATE
  15. TAKELDA [Concomitant]
     Active Substance: ASPIRIN\LANSOPRAZOLE
  16. MAGNESIUM OXIDE. [Concomitant]
     Active Substance: MAGNESIUM OXIDE
  17. SOLDACTONE [Concomitant]
     Active Substance: CANRENOATE POTASSIUM
  18. VENTAVIS [Suspect]
     Active Substance: ILOPROST
     Indication: PULMONARY ARTERIAL HYPERTENSION
     Dosage: 2.5 ?G, Q4HRS
     Route: 055
     Dates: start: 20161125, end: 20161205
  19. QUETIAPINE. [Concomitant]
     Active Substance: QUETIAPINE
  20. SLOW?K [Concomitant]
     Active Substance: POTASSIUM CHLORIDE
  21. DOBUPUM [Concomitant]
     Active Substance: DOBUTAMINE HYDROCHLORIDE
  22. OXYGEN. [Concomitant]
     Active Substance: OXYGEN
  23. PREDNISOLONE. [Concomitant]
     Active Substance: PREDNISOLONE
     Dosage: UNK
     Dates: start: 20161207
  24. OPSUMIT [Suspect]
     Active Substance: MACITENTAN
     Indication: PULMONARY ARTERIAL HYPERTENSION
     Dosage: 10 MG, QD
     Route: 048
     Dates: start: 20161115
  25. LASIX [Suspect]
     Active Substance: FUROSEMIDE
     Indication: RIGHT VENTRICULAR FAILURE
     Dosage: 2 ML, UNK
     Route: 042
     Dates: start: 20161212, end: 20161222
  26. CANDESARTAN. [Concomitant]
     Active Substance: CANDESARTAN
  27. ASPARA POTASSIUM [Concomitant]
     Active Substance: POTASSIUM ASPARTATE
  28. INOVAN [Concomitant]
     Active Substance: DOPAMINE HYDROCHLORIDE
  29. PITAVASTATIN CA [Concomitant]
     Active Substance: PITAVASTATIN CALCIUM
  30. JARDIANCE [Concomitant]
     Active Substance: EMPAGLIFLOZIN
  31. BISOPROLOL [Concomitant]
     Active Substance: BISOPROLOL
  32. ULTIBRO [Concomitant]
     Active Substance: GLYCOPYRRONIUM\INDACATEROL
  33. HUMULIN R [Suspect]
     Active Substance: INSULIN HUMAN
     Dosage: 10 ML, UNK
     Route: 042
     Dates: start: 20161228, end: 20161228
  34. DIART [Concomitant]
     Active Substance: AZOSEMIDE
  35. SAMSCA [Concomitant]
     Active Substance: TOLVAPTAN

REACTIONS (7)
  - Pneumonia influenzal [Recovering/Resolving]
  - Respiratory tract haemorrhage [Recovering/Resolving]
  - Mechanical ventilation [Unknown]
  - Cough [Recovering/Resolving]
  - Haemoptysis [Recovering/Resolving]
  - Pyrexia [Recovering/Resolving]
  - Hypokalaemia [Recovering/Resolving]

NARRATIVE: CASE EVENT DATE: 20161203
